FAERS Safety Report 11195571 (Version 2)
Quarter: 2015Q2

REPORT INFORMATION
  Report Type: Spontaneous
  Country: US (occurrence: US)
  Receive Date: 20150617
  Receipt Date: 20150619
  Transmission Date: 20150821
  Serious: No
  Sender: FDA-Public Use
  Company Number: US-PFIZER INC-2015198215

PATIENT

DRUGS (6)
  1. STAVUDINE. [Suspect]
     Active Substance: STAVUDINE
     Route: 064
  2. DELAVIRDINE MESYLATE [Suspect]
     Active Substance: DELAVIRDINE MESYLATE
     Dosage: UNK
     Route: 064
  3. NELFINAVIR MESILATE [Suspect]
     Active Substance: NELFINAVIR MESYLATE
     Dosage: UNK
     Route: 064
  4. LAMIVUDINE. [Suspect]
     Active Substance: LAMIVUDINE
     Route: 064
  5. SAQUINAVIR [Suspect]
     Active Substance: SAQUINAVIR
     Dosage: UNK
     Route: 064
  6. ZIDOVUDINE. [Suspect]
     Active Substance: ZIDOVUDINE
     Dosage: UNK
     Route: 064

REACTIONS (3)
  - Small for dates baby [Unknown]
  - Maternal exposure during pregnancy [Unknown]
  - Low birth weight baby [Unknown]
